FAERS Safety Report 19279846 (Version 1)
Quarter: 2021Q2

REPORT INFORMATION
  Report Type: Spontaneous
  Country: TR (occurrence: TR)
  Receive Date: 20210520
  Receipt Date: 20210520
  Transmission Date: 20210717
  Serious: Yes (Hospitalization)
  Sender: FDA-Public Use
  Company Number: TR-TEVA-2021-TR-1914820

PATIENT
  Sex: Female

DRUGS (9)
  1. BIPERIDEN [Concomitant]
     Active Substance: BIPERIDEN
     Indication: PSYCHOTIC SYMPTOM
     Dosage: 4 MILLIGRAM DAILY;
     Route: 065
  2. PREDNISOLONE. [Suspect]
     Active Substance: PREDNISOLONE
     Indication: IMMUNE THROMBOCYTOPENIA
     Dosage: 60 MILLIGRAM DAILY; LOADING TREATMENT
     Route: 048
  3. PREDNISOLONE. [Suspect]
     Active Substance: PREDNISOLONE
     Dosage: 15 MILLIGRAM DAILY;
     Route: 048
  4. HALOPERIDOL. [Suspect]
     Active Substance: HALOPERIDOL
     Indication: PSYCHOTIC SYMPTOM
  5. HALOPERIDOL. [Suspect]
     Active Substance: HALOPERIDOL
     Indication: MANIA
     Dosage: AMPOULE 2X2 INJECTION
     Route: 065
  6. PREDNISOLONE. [Suspect]
     Active Substance: PREDNISOLONE
     Dosage: LOADING DOSE 20 YEARS AGO
     Route: 048
  7. VALPROATE [Suspect]
     Active Substance: VALPROIC ACID
     Indication: AFFECTIVE DISORDER
     Dosage: 1000 MILLIGRAM DAILY;
     Route: 065
  8. QUETIAPINE. [Suspect]
     Active Substance: QUETIAPINE
     Indication: AFFECTIVE DISORDER
     Dosage: 300 MILLIGRAM DAILY;
     Route: 065
  9. BIPERIDEN [Concomitant]
     Active Substance: BIPERIDEN
     Indication: MANIA
     Dosage: AMPOULE 2X1
     Route: 065

REACTIONS (4)
  - Mania [Recovering/Resolving]
  - Psychotic symptom [Recovering/Resolving]
  - Bipolar disorder [Recovering/Resolving]
  - Drug ineffective [Unknown]
